FAERS Safety Report 6965350-3 (Version None)
Quarter: 2010Q3

REPORT INFORMATION
  Report Type: 
  Country: None (occurrence: None)
  Receive Date: 20100903
  Receipt Date: 20100825
  Transmission Date: 20110219
  Serious: Yes (Other)
  Sender: FDA-Public Use
  Company Number: US-PFIZER INC-2010107469

PATIENT
  Sex: Male
  Weight: 126.98 kg

DRUGS (12)
  1. NEURONTIN [Suspect]
     Indication: PAIN IN EXTREMITY
     Dosage: 100 MG, 1X/DAY
     Route: 048
  2. REMODULIN [Concomitant]
     Indication: PULMONARY HYPERTENSION
     Dosage: UNK,CONTINUOUS INFUSION
     Route: 042
  3. TRACLEER [Concomitant]
     Indication: PULMONARY HYPERTENSION
     Dosage: 125 MG, 2X/DAY
     Route: 048
  4. NORVASC [Concomitant]
     Indication: PULMONARY HYPERTENSION
     Dosage: 10 MG, 1X/DAY
     Route: 048
  5. SYMBICORT [Concomitant]
     Indication: ASTHMA
     Dosage: TWO PUFFS 2X/DAY
  6. ZESTRIL [Concomitant]
     Dosage: 10 MG, 1X/DAY
     Route: 048
  7. PROVIGIL [Concomitant]
     Indication: NARCOLEPSY
     Dosage: 200 MG, 1X/DAY
     Route: 048
  8. SPIRIVA [Concomitant]
     Indication: ASTHMA
     Dosage: UNK
  9. LEXAPRO [Concomitant]
     Indication: DEPRESSION
     Dosage: 10 MG, 1X/DAY
     Route: 048
  10. WARFARIN [Concomitant]
     Indication: ANTICOAGULANT THERAPY
     Dosage: 12.5 MG, 1X/DAY
  11. REVATIO [Concomitant]
     Indication: PULMONARY HYPERTENSION
     Dosage: 20 MG, 3X/DAY
     Route: 048
  12. SPIRONOLACTONE [Concomitant]
     Indication: OEDEMA
     Dosage: 50 MG, 1X/DAY

REACTIONS (3)
  - GASTROOESOPHAGEAL REFLUX DISEASE [None]
  - HYPERSENSITIVITY [None]
  - OROPHARYNGEAL SPASM [None]
